FAERS Safety Report 8079249-5 (Version None)
Quarter: 2012Q1

REPORT INFORMATION
  Report Type: 
  Country: None (occurrence: None)
  Receive Date: 20120128
  Receipt Date: 20110818
  Transmission Date: 20120608
  Serious: Yes (Other)
  Sender: FDA-Public Use
  Company Number: US-ABBOTT-11P-163-0848125-00

PATIENT
  Sex: Female
  Weight: 113.05 kg

DRUGS (9)
  1. FOLIC ACID [Concomitant]
     Indication: PROPHYLAXIS
  2. ZOLPIDEM [Concomitant]
     Indication: INSOMNIA
  3. PREMARIN [Concomitant]
     Indication: HORMONE REPLACEMENT THERAPY
  4. HUMIRA [Suspect]
     Route: 058
     Dates: start: 20100801
  5. FOLIC ACID [Concomitant]
     Indication: FOLATE DEFICIENCY
  6. LEUCOVORIN CALCIUM [Concomitant]
     Indication: PRODUCT USED FOR UNKNOWN INDICATION
     Dosage: 5 MG WEEKLY 24 HRS AFTER MTX DOSE
  7. HUMIRA [Suspect]
     Indication: RHEUMATOID ARTHRITIS
     Dates: start: 20080101, end: 20091101
  8. METHOTREXATE [Concomitant]
     Indication: RHEUMATOID ARTHRITIS
  9. TOPROL-XL [Concomitant]
     Indication: HYPERTENSION

REACTIONS (3)
  - HYSTERECTOMY [None]
  - MENSTRUATION IRREGULAR [None]
  - UTERINE ENLARGEMENT [None]
